FAERS Safety Report 4306989-3 (Version None)
Quarter: 2004Q1

REPORT INFORMATION
  Report Type: 
  Country: None (occurrence: None)
  Receive Date: 20040225
  Receipt Date: 20040206
  Transmission Date: 20041129
  Serious: Yes (Life-Threatening, Hospitalization)
  Sender: FDA-Public Use
  Company Number: FR_040203567

PATIENT
  Age: 75 Year
  Sex: Female

DRUGS (1)
  1. EVISTA [Suspect]
     Indication: OSTEOPOROSIS
     Dosage: 60 MG/DAY
     Dates: start: 20030101, end: 20040101

REACTIONS (3)
  - ARTERIAL THROMBOSIS LIMB [None]
  - CAROTID ARTERY THROMBOSIS [None]
  - OESOPHAGEAL HAEMORRHAGE [None]
